FAERS Safety Report 16016730 (Version 1)
Quarter: 2019Q1

REPORT INFORMATION
  Report Type: Spontaneous
  Country: US (occurrence: US)
  Receive Date: 20190228
  Receipt Date: 20190228
  Transmission Date: 20190418
  Serious: Yes (Other)
  Sender: FDA-Public Use
  Company Number: US-SCIEGEN PHARMACEUTICALS INC-2019SCILIT00107

PATIENT

DRUGS (6)
  1. DONEPEZIL. [Concomitant]
     Active Substance: DONEPEZIL
     Indication: DEMENTIA
     Dosage: UNK
     Route: 065
  2. QUETIAPINE. [Suspect]
     Active Substance: QUETIAPINE
     Indication: DEMENTIA
     Dosage: UNK
     Route: 065
  3. DONEPEZIL. [Concomitant]
     Active Substance: DONEPEZIL
     Indication: DEPRESSION
  4. MEMANTINE. [Concomitant]
     Active Substance: MEMANTINE
     Indication: DEPRESSION
  5. QUETIAPINE. [Suspect]
     Active Substance: QUETIAPINE
     Indication: DEPRESSION
  6. MEMANTINE. [Concomitant]
     Active Substance: MEMANTINE
     Indication: DEMENTIA
     Dosage: UNK
     Route: 065

REACTIONS (2)
  - Urinary retention [Recovered/Resolved]
  - Delirium [Recovered/Resolved]
